FAERS Safety Report 12645081 (Version 1)
Quarter: 2016Q3

REPORT INFORMATION
  Report Type: Spontaneous
  Country: FR (occurrence: FR)
  Receive Date: 20160811
  Receipt Date: 20160811
  Transmission Date: 20161109
  Serious: Yes (Other)
  Sender: FDA-Public Use
  Company Number: FR-SA-2014SA036752

PATIENT
  Age: 86 Year
  Sex: Male

DRUGS (13)
  1. PARACETAMOL [Concomitant]
     Active Substance: ACETAMINOPHEN
  2. KARDEGIC [Suspect]
     Active Substance: ASPIRIN LYSINE
     Indication: PRODUCT USED FOR UNKNOWN INDICATION
     Route: 048
     Dates: end: 20140225
  3. ROCEPHINE [Concomitant]
     Active Substance: CEFTRIAXONE SODIUM
     Route: 042
     Dates: start: 20140220, end: 20140224
  4. RULID [Concomitant]
     Active Substance: ROXITHROMYCIN
     Route: 042
     Dates: start: 20140220, end: 20140224
  5. LAROXYL [Concomitant]
     Active Substance: AMITRIPTYLINE
  6. BISOPROLOL [Concomitant]
     Active Substance: BISOPROLOL
  7. DISCOTRINE [Concomitant]
     Active Substance: NITROGLYCERIN
     Dosage: PATCH
  8. AUGMENTIN [Concomitant]
     Active Substance: AMOXICILLIN\CLAVULANATE POTASSIUM
     Dates: start: 20140215, end: 20140217
  9. CLOPIDOGREL BISULFATE. [Suspect]
     Active Substance: CLOPIDOGREL BISULFATE
     Indication: PRODUCT USED FOR UNKNOWN INDICATION
     Route: 048
     Dates: end: 20140225
  10. INEXIUM [Suspect]
     Active Substance: ESOMEPRAZOLE
     Indication: PRODUCT USED FOR UNKNOWN INDICATION
     Route: 048
     Dates: end: 20140228
  11. NICORANDIL [Concomitant]
     Active Substance: NICORANDIL
  12. LASILIX [Concomitant]
     Active Substance: FUROSEMIDE
  13. CALCIPARINE [Concomitant]
     Active Substance: HEPARIN CALCIUM
     Dates: start: 201402, end: 20140221

REACTIONS (1)
  - Thrombocytopenia [Unknown]

NARRATIVE: CASE EVENT DATE: 20140221
